FAERS Safety Report 13988833 (Version 1)
Quarter: 2017Q3

REPORT INFORMATION
  Report Type: Spontaneous
  Country: None (occurrence: US)
  Receive Date: 20170919
  Receipt Date: 20170919
  Transmission Date: 20171128
  Serious: No
  Sender: FDA-Public Use
  Company Number: US-TEIKOKU PHARMA USA-TPU2017-00552

PATIENT
  Sex: Female
  Weight: 63.56 kg

DRUGS (3)
  1. LIDODERM [Suspect]
     Active Substance: LIDOCAINE
     Indication: SYSTEMIC LUPUS ERYTHEMATOSUS
  2. LIDODERM [Suspect]
     Active Substance: LIDOCAINE
     Indication: SYSTEMIC LUPUS ERYTHEMATOSUS
     Dosage: CUTS PATCH INTO SMALLER PIECES AND APPLIES THEM TO AREAS OF PAIN, UP TO 12 HOURS, OFF FOR 12 HOURS
     Route: 061
     Dates: start: 2012
  3. STEROIDS [Suspect]
     Active Substance: UNSPECIFIED INGREDIENT
     Indication: DERMATITIS

REACTIONS (6)
  - Angioedema [Unknown]
  - Expired product administered [Unknown]
  - Erythema [Unknown]
  - Malaise [Unknown]
  - Hyperhidrosis [Unknown]
  - Weight fluctuation [Unknown]

NARRATIVE: CASE EVENT DATE: 2016
